FAERS Safety Report 6385346-2 (Version None)
Quarter: 2009Q4

REPORT INFORMATION
  Report Type: 
  Country: None (occurrence: None)
  Receive Date: 20091002
  Receipt Date: 20080807
  Transmission Date: 20100525
  Serious: Yes (Other)
  Sender: FDA-Public Use
  Company Number: US-ASTRAZENECA-2008UW16372

PATIENT
  Age: 76 Year
  Sex: Female
  Weight: 85.7 kg

DRUGS (7)
  1. ARIMIDEX [Suspect]
     Indication: BREAST CANCER
     Route: 048
     Dates: start: 20050101
  2. SIMVASTATIN [Concomitant]
  3. GLYBURIDE [Concomitant]
  4. METFORMIN [Concomitant]
  5. ACTOS [Concomitant]
  6. SULINDAC [Concomitant]
  7. ZESTORETIC [Concomitant]

REACTIONS (1)
  - ARTHRALGIA [None]
